FAERS Safety Report 5256307-1 (Version None)
Quarter: 2007Q1

REPORT INFORMATION
  Report Type: 
  Country: None (occurrence: None)
  Receive Date: 20070306
  Receipt Date: 20070301
  Transmission Date: 20070707
  Serious: Yes (Death)
  Sender: FDA-Public Use
  Company Number: FR-AVENTIS-200710637FR

PATIENT
  Age: 35 Year
  Sex: Male
  Weight: 135 kg

DRUGS (4)
  1. CODE UNBROKEN [Suspect]
     Route: 048
     Dates: end: 20050221
  2. GLYPRESSINE [Concomitant]
     Indication: PORTAL HYPERTENSION
     Route: 042
  3. CORTANCYL [Concomitant]
     Indication: DRUG USE FOR UNKNOWN INDICATION
     Route: 048
  4. AVLOCARDYL [Concomitant]
     Indication: DRUG USE FOR UNKNOWN INDICATION
     Route: 048

REACTIONS (1)
  - DEATH [None]
